FAERS Safety Report 9890593 (Version 1)
Quarter: 2014Q1

REPORT INFORMATION
  Report Type: Spontaneous
  Country: US (occurrence: None)
  Receive Date: 20140210
  Receipt Date: 20140210
  Transmission Date: 20141002
  Serious: No
  Sender: FDA-Public Use
  Company Number: None

PATIENT
  Age: 49 Year
  Sex: Male
  Weight: 87.2 kg

DRUGS (3)
  1. CARFILZOMIB [Suspect]
     Indication: PLASMA CELL MYELOMA
     Dosage: 56MG: DAYS 1,2,8,9,15,16?THERAPY DATES: 10/29-11/12
  2. DEXAMETHASONE [Suspect]
     Dosage: 8MG: DAYS 1,2,8,9,15,16?
  3. ONDANSETRON [Concomitant]

REACTIONS (2)
  - Pulmonary embolism [None]
  - Renal failure acute [None]
